FAERS Safety Report 4987212-3 (Version None)
Quarter: 2006Q2

REPORT INFORMATION
  Report Type: 
  Country: None (occurrence: None)
  Receive Date: 20060501
  Receipt Date: 19981119
  Transmission Date: 20061013
  Serious: Yes (Hospitalization)
  Sender: FDA-Public Use
  Company Number: US-MERCK-98111499

PATIENT
  Age: 67 Year
  Sex: Female
  Weight: 63 kg

DRUGS (13)
  1. FLONASE [Concomitant]
     Indication: ASTHMA
     Route: 065
  2. SINGULAIR [Concomitant]
     Indication: ASTHMA
     Route: 048
  3. IRON (UNSPECIFIED) [Concomitant]
     Route: 065
  4. PRAVACHOL [Concomitant]
     Route: 065
  5. ACIPHEX [Concomitant]
     Route: 065
  6. VANCERIL [Concomitant]
     Indication: ASTHMA
     Route: 065
  7. ALBUTEROL [Concomitant]
     Route: 065
  8. FOSAMAX [Suspect]
     Indication: OSTEOPOROSIS
     Route: 048
     Dates: start: 19980101, end: 20000102
  9. FOSAMAX [Suspect]
     Route: 048
     Dates: start: 20000106
  10. FOSAMAX [Suspect]
     Route: 048
  11. THEOPHYLLINE [Concomitant]
     Route: 065
  12. PROVENTIL [Concomitant]
     Indication: ASTHMA
     Route: 065
  13. CALCIUM SUPPLEMENT (COMPOSITION UNSPECIFIED) [Concomitant]
     Route: 065

REACTIONS (14)
  - BODY HEIGHT DECREASED [None]
  - BONE CYST [None]
  - BONE DENSITY DECREASED [None]
  - BONE DISORDER [None]
  - DENTAL CARIES [None]
  - DIZZINESS [None]
  - GASTROINTESTINAL HAEMORRHAGE [None]
  - GASTROINTESTINAL ULCER [None]
  - GASTROOESOPHAGEAL REFLUX DISEASE [None]
  - HIATUS HERNIA [None]
  - IRON DEFICIENCY [None]
  - NORMOCHROMIC NORMOCYTIC ANAEMIA [None]
  - RASH [None]
  - TOOTH DISORDER [None]
